FAERS Safety Report 5151304-9 (Version None)
Quarter: 2006Q4

REPORT INFORMATION
  Report Type: 
  Country: None (occurrence: None)
  Receive Date: 20061115
  Receipt Date: 20061030
  Transmission Date: 20070319
  Serious: Yes (Hospitalization)
  Sender: FDA-Public Use
  Company Number: US-GLAXOSMITHKLINE-A0625654A

PATIENT
  Age: 64 Year
  Sex: Male

DRUGS (2)
  1. TOPOTECAN [Suspect]
     Indication: COLON CANCER STAGE IV
     Dosage: 1MGM2 CYCLIC
     Route: 042
     Dates: start: 20061009
  2. ERLOTINIB [Suspect]
     Indication: COLON CANCER STAGE IV
     Dosage: 150MG PER DAY
     Route: 048

REACTIONS (5)
  - ANAEMIA [None]
  - CHEST PAIN [None]
  - MYOCARDIAL ISCHAEMIA [None]
  - NEUTROPHIL COUNT [None]
  - WHITE BLOOD CELL COUNT DECREASED [None]
